FAERS Safety Report 18081696 (Version 1)
Quarter: 2020Q3

REPORT INFORMATION
  Report Type: Other
  Country: US (occurrence: US)
  Receive Date: 20200728
  Receipt Date: 20200728
  Transmission Date: 20201103
  Serious: Yes (Other)
  Sender: FDA-Public Use
  Company Number: US-ROCHE-2646984

PATIENT
  Sex: Male

DRUGS (1)
  1. XELODA [Suspect]
     Active Substance: CAPECITABINE
     Indication: RECTOSIGMOID CANCER
     Dosage: TAKE 3 TABLET(S) BY MOUTH TWICE A DAY ON DAYS 1?14
     Route: 048

REACTIONS (1)
  - Neoplasm [Unknown]
